FAERS Safety Report 9641638 (Version 1)
Quarter: 2013Q4

REPORT INFORMATION
  Report Type: Spontaneous
  Country: CH (occurrence: CH)
  Receive Date: 20131023
  Receipt Date: 20131023
  Transmission Date: 20140711
  Serious: Yes (Life-Threatening)
  Sender: FDA-Public Use
  Company Number: CH-GLAXOSMITHKLINE-B0933807A

PATIENT
  Age: 37 Year
  Sex: Female
  Weight: 80 kg

DRUGS (6)
  1. ZINACEF [Suspect]
     Indication: PROPHYLACTIC CHEMOTHERAPY
     Dosage: 1.5G SINGLE DOSE
     Route: 042
     Dates: start: 20130919, end: 20130919
  2. CARBETOCIN [Suspect]
     Indication: PROPHYLAXIS
     Dosage: 100UG SINGLE DOSE
     Route: 042
     Dates: start: 20130919, end: 20130919
  3. BUPIVACAINE [Suspect]
     Indication: PRODUCT USED FOR UNKNOWN INDICATION
     Dosage: 12.5MG SINGLE DOSE
     Route: 037
     Dates: start: 20130919, end: 20130919
  4. FENTANYL [Suspect]
     Indication: PRODUCT USED FOR UNKNOWN INDICATION
     Dosage: 25UG SINGLE DOSE
     Route: 040
     Dates: start: 20130919, end: 20130919
  5. AXOTIDE [Concomitant]
     Indication: ASTHMA
     Route: 055
  6. VENTOLIN [Concomitant]
     Indication: ASTHMA
     Route: 055

REACTIONS (7)
  - Angioedema [Recovered/Resolved]
  - Type IV hypersensitivity reaction [Recovered/Resolved]
  - Dyspnoea [Recovered/Resolved]
  - Oxygen saturation decreased [Recovered/Resolved]
  - Rash [Recovered/Resolved]
  - Hypotension [Recovered/Resolved]
  - Agitation [Recovered/Resolved]
